FAERS Safety Report 4469520-8 (Version None)
Quarter: 2004Q3

REPORT INFORMATION
  Report Type: 
  Country: None (occurrence: None)
  Receive Date: 20040920
  Receipt Date: 20040623
  Transmission Date: 20050211
  Serious: Yes (Other)
  Sender: FDA-Public Use
  Company Number: PHEH2004US06843

PATIENT
  Sex: Male

DRUGS (1)
  1. ZOMETA [Suspect]
     Indication: PROSTATE CANCER METASTATIC
     Dosage: 4 MG MONTHLY, INTRAVENOUS
     Route: 042
     Dates: start: 20030101

REACTIONS (6)
  - DENTAL CARIES [None]
  - HYPOAESTHESIA [None]
  - OSTEONECROSIS [None]
  - SURGERY [None]
  - SWELLING [None]
  - WOUND TREATMENT [None]
